FAERS Safety Report 6698243-X (Version None)
Quarter: 2010Q2

REPORT INFORMATION
  Report Type: 
  Country: None (occurrence: None)
  Receive Date: 20100427
  Receipt Date: 20100420
  Transmission Date: 20101027
  Serious: Yes (Hospitalization)
  Sender: FDA-Public Use
  Company Number: JP-BRISTOL-MYERS SQUIBB COMPANY-15075393

PATIENT
  Age: 69 Year
  Sex: Male

DRUGS (2)
  1. PARAPLATIN [Suspect]
     Indication: SMALL CELL LUNG CANCER STAGE UNSPECIFIED
     Route: 041
     Dates: start: 20080201
  2. IRINOTECAN HCL [Concomitant]
     Indication: SMALL CELL LUNG CANCER STAGE UNSPECIFIED
     Dosage: INJECTION
     Dates: start: 20080201

REACTIONS (1)
  - PNEUMATOSIS INTESTINALIS [None]
